FAERS Safety Report 7214379-9 (Version None)
Quarter: 2011Q1

REPORT INFORMATION
  Report Type: 
  Country: None (occurrence: None)
  Receive Date: 20110107
  Receipt Date: 20101228
  Transmission Date: 20110831
  Serious: Yes (Other)
  Sender: FDA-Public Use
  Company Number: PHHY2010CN54899

PATIENT
  Age: 24 Year
  Sex: Female

DRUGS (1)
  1. SEBIVO [Suspect]
     Dosage: 600 MG, QD

REACTIONS (3)
  - NORMAL NEWBORN [None]
  - DRUG EXPOSURE DURING PREGNANCY [None]
  - CAESAREAN SECTION [None]
